FAERS Safety Report 22158465 (Version 2)
Quarter: 2023Q2

REPORT INFORMATION
  Report Type: Report from Study
  Country: CR (occurrence: None)
  Receive Date: 20230331
  Receipt Date: 20230420
  Transmission Date: 20230721
  Serious: Yes (Other)
  Sender: FDA-Public Use
  Company Number: CR-Merck Healthcare KGaA-9384433

PATIENT
  Sex: Female

DRUGS (1)
  1. REBIF [Suspect]
     Active Substance: INTERFERON BETA-1A
     Indication: Multiple sclerosis
     Route: 058
     Dates: start: 20130207

REACTIONS (8)
  - Bladder malposition acquired [Unknown]
  - Anorectal disorder [Unknown]
  - Uterine prolapse [Unknown]
  - Headache [Not Recovered/Not Resolved]
  - Chills [Unknown]
  - Hypertension [Recovered/Resolved]
  - Proctalgia [Unknown]
  - Urinary incontinence [Unknown]
